FAERS Safety Report 5701014-1 (Version None)
Quarter: 2008Q2

REPORT INFORMATION
  Report Type: 
  Country: None (occurrence: None)
  Receive Date: 20080410
  Receipt Date: 20080403
  Transmission Date: 20081010
  Serious: No
  Sender: FDA-Public Use
  Company Number: US-BAXTER-2008BH002601

PATIENT
  Age: 36 Year
  Sex: Female

DRUGS (3)
  1. HEPARIN SODIUM [Suspect]
     Indication: FACTOR V LEIDEN MUTATION
     Route: 058
     Dates: start: 20070611, end: 20070701
  2. LOVENOX [Suspect]
     Indication: FACTOR V LEIDEN MUTATION
     Dosage: DOSE UNIT:UNKNOWN
     Route: 058
     Dates: start: 20061114, end: 20070601
  3. VITAMIN TAB [Concomitant]
     Indication: DRUG USE FOR UNKNOWN INDICATION
     Dosage: DOSE UNIT:UNKNOWN
     Route: 065

REACTIONS (3)
  - DRUG EXPOSURE DURING PREGNANCY [None]
  - INJECTION SITE BRUISING [None]
  - SKIN HYPERPIGMENTATION [None]
